FAERS Safety Report 8575796-8 (Version None)
Quarter: 2012Q3

REPORT INFORMATION
  Report Type: 
  Country: None (occurrence: None)
  Receive Date: 20120807
  Receipt Date: 20120731
  Transmission Date: 20120928
  Serious: Yes (Hospitalization, Disabling, Other)
  Sender: FDA-Public Use
  Company Number: US-009507513-1112USA00798

PATIENT

DRUGS (9)
  1. FOSAMAX [Suspect]
     Route: 048
     Dates: start: 20080201, end: 20080101
  2. FOSAMAX [Suspect]
     Indication: OSTEOPOROSIS PROPHYLAXIS
  3. ESOMEPRAZOLE [Concomitant]
     Dates: start: 20070101, end: 20090101
  4. ALENDRONATE SODIUM [Suspect]
     Indication: OSTEOPOROSIS
     Route: 048
     Dates: start: 20080201, end: 20080101
  5. FOSAMAX [Suspect]
     Indication: OSTEOPENIA
     Dosage: 70 MG, QW
     Route: 048
     Dates: start: 20010508, end: 20080701
  6. ALENDRONATE SODIUM [Suspect]
     Indication: OSTEOPOROSIS PROPHYLAXIS
  7. PREDNISONE [Suspect]
     Indication: DERMATOMYOSITIS
     Dosage: UNK
     Dates: start: 20021201, end: 20080201
  8. FOSAMAX [Suspect]
     Indication: OSTEOPOROSIS
     Dosage: 10 MG, QD
     Route: 048
     Dates: start: 19980101, end: 20010401
  9. RECLAST [Suspect]
     Indication: OSTEOPOROSIS
     Dosage: 5/100 ML
     Route: 041

REACTIONS (46)
  - FEMUR FRACTURE [None]
  - ARTHROPATHY [None]
  - PRURITUS [None]
  - LIVER FUNCTION TEST ABNORMAL [None]
  - GASTRIC DISORDER [None]
  - NAIL INFECTION [None]
  - SOFT TISSUE INJURY [None]
  - ANAEMIA [None]
  - BURSITIS [None]
  - ARTHRITIS [None]
  - DERMATOMYOSITIS [None]
  - CAROTID ARTERY STENOSIS [None]
  - CARDIAC DISORDER [None]
  - VERTIGO [None]
  - HYPERKERATOSIS [None]
  - TYMPANIC MEMBRANE PERFORATION [None]
  - OSTEOARTHRITIS [None]
  - OSTEONECROSIS [None]
  - LOW TURNOVER OSTEOPATHY [None]
  - DEAFNESS NEUROSENSORY [None]
  - PALPITATIONS [None]
  - TACHYCARDIA [None]
  - CELLULITIS [None]
  - BACK PAIN [None]
  - POSTMENOPAUSAL HAEMORRHAGE [None]
  - ARTHRALGIA [None]
  - EAR DISORDER [None]
  - JOINT EFFUSION [None]
  - CERUMEN IMPACTION [None]
  - BENIGN NEOPLASM OF SKIN [None]
  - URINARY TRACT INFECTION [None]
  - HAEMORRHAGIC ANAEMIA [None]
  - ADVERSE DRUG REACTION [None]
  - ESSENTIAL HYPERTENSION [None]
  - ARRHYTHMIA [None]
  - GASTROOESOPHAGEAL REFLUX DISEASE [None]
  - HERPES ZOSTER [None]
  - HEADACHE [None]
  - EXOSTOSIS [None]
  - SYSTEMIC LUPUS ERYTHEMATOSUS [None]
  - FALL [None]
  - FLUSHING [None]
  - FOOT DEFORMITY [None]
  - DYSPHONIA [None]
  - TINNITUS [None]
  - CONTUSION [None]
